FAERS Safety Report 23283925 (Version 2)
Quarter: 2023Q4

REPORT INFORMATION
  Report Type: Spontaneous
  Country: PL (occurrence: PL)
  Receive Date: 20231211
  Receipt Date: 20231213
  Transmission Date: 20240109
  Serious: Yes (Hospitalization)
  Sender: FDA-Public Use
  Company Number: PL-SANDOZ-SDZ2023PL065406

PATIENT
  Age: 31 Year
  Sex: Male

DRUGS (6)
  1. ACETAMINOPHEN [Suspect]
     Active Substance: ACETAMINOPHEN
     Indication: Penile pain
     Dosage: UNK
     Route: 065
  2. ACETAMINOPHEN\TRAMADOL [Suspect]
     Active Substance: ACETAMINOPHEN\TRAMADOL
     Indication: Penile pain
     Dosage: UNK
     Route: 065
  3. ACETAMINOPHEN\DIPHENHYDRAMINE HYDROCHLORIDE [Concomitant]
     Active Substance: ACETAMINOPHEN\DIPHENHYDRAMINE HYDROCHLORIDE
     Indication: Product used for unknown indication
     Dosage: UNK
     Route: 065
  4. MIANSERIN [Interacting]
     Active Substance: MIANSERIN
     Indication: Depression
     Dosage: 30 MILLIGRAM DAILY;
     Route: 065
  5. VENLAFAXINE [Interacting]
     Active Substance: VENLAFAXINE HYDROCHLORIDE
     Dosage: 37.5 MILLIGRAM DAILY; INITIALLY AT A DOSE OF 37.5 MG/D
     Route: 065
  6. VENLAFAXINE [Interacting]
     Active Substance: VENLAFAXINE HYDROCHLORIDE
     Indication: Depression
     Dosage: 75 MILLIGRAM DAILY; THEN INCREASING IT TO 75 MG/D
     Route: 065

REACTIONS (6)
  - Painful erection [Recovered/Resolved]
  - Drug interaction [Unknown]
  - Penile pain [Recovered/Resolved]
  - Drug ineffective [Unknown]
  - Hyperhidrosis [Unknown]
  - Body temperature increased [Unknown]
